FAERS Safety Report 20343059 (Version 1)
Quarter: 2022Q1

REPORT INFORMATION
  Report Type: Spontaneous
  Country: US (occurrence: US)
  Receive Date: 20220117
  Receipt Date: 20220117
  Transmission Date: 20220423
  Serious: No
  Sender: FDA-Public Use
  Company Number: US-PERRIGO-21US029453

PATIENT
  Age: 0 Year
  Sex: Male
  Weight: 8.345 kg

DRUGS (1)
  1. IBUPROFEN [Suspect]
     Active Substance: IBUPROFEN
     Indication: Teething
     Dosage: UNK, PRN
     Route: 048
     Dates: start: 20211004, end: 20211010

REACTIONS (3)
  - Faeces discoloured [Unknown]
  - Drug ineffective [Unknown]
  - Underdose [Recovered/Resolved]

NARRATIVE: CASE EVENT DATE: 20211010
